FAERS Safety Report 6232531-6 (Version None)
Quarter: 2009Q2

REPORT INFORMATION
  Report Type: 
  Country: None (occurrence: None)
  Receive Date: 20090617
  Receipt Date: 20090601
  Transmission Date: 20091009
  Serious: Yes (Other)
  Sender: FDA-Public Use
  Company Number: US-BAYER-200922156GPV

PATIENT

DRUGS (19)
  1. LEUKINE [Suspect]
     Indication: STEM CELL TRANSPLANT
     Dosage: ON DAY 0 OF STEM CELL INFUSION
     Route: 042
  2. NEUPOGEN [Suspect]
     Indication: STEM CELL TRANSPLANT
     Route: 042
  3. ALEMTUZUMAB [Concomitant]
     Indication: STEM CELL TRANSPLANT
  4. RABBIT ANTITHYMOCYTE GLOBULIN [Concomitant]
     Indication: STEM CELL TRANSPLANT
  5. TACROLIMUS [Concomitant]
     Indication: PROPHYLAXIS AGAINST GRAFT VERSUS HOST DISEASE
     Dosage: STARTING ON DAY 1
     Route: 042
  6. TACROLIMUS [Concomitant]
     Dosage: STARTING ON DAY 1
     Route: 048
  7. MYCOPHENOLATE MOFETIL [Concomitant]
     Indication: PROPHYLAXIS AGAINST GRAFT VERSUS HOST DISEASE
     Dosage: STARTING ON DAY +1
     Route: 042
  8. MYCOPHENOLATE MOFETIL [Concomitant]
     Dosage: STARTING ON DAY +1
     Route: 048
  9. TRIMETHOPRIM + SULFAMETHOXAZOLE [Concomitant]
     Indication: ANTIFUNGAL PROPHYLAXIS
     Route: 048
  10. TRIMETHOPRIM + SULFAMETHOXAZOLE [Concomitant]
     Dosage: UNTIL DAY -2
     Route: 048
  11. PENTAMIDINE ISETHIONATE [Concomitant]
     Indication: ANTIFUNGAL PROPHYLAXIS
     Dosage: ON DAY -1
  12. PENTAMIDINE ISETHIONATE [Concomitant]
  13. PENTAMIDINE ISETHIONATE [Concomitant]
     Dosage: EVERY 2-4 WEEKS
  14. ACYCLOVIR [Concomitant]
     Indication: ANTIVIRAL PROPHYLAXIS
     Dosage: STARTING ON DAY -5
  15. FOSCARNET [Concomitant]
     Indication: ANTIVIRAL PROPHYLAXIS
     Route: 042
  16. GANCICLOVIR [Concomitant]
     Indication: ANTIVIRAL PROPHYLAXIS
     Route: 042
  17. AMPHOTERICIN B [Concomitant]
     Indication: ANTIFUNGAL PROPHYLAXIS
     Dosage: STARTING ON DAY 0 THROUGH DAY +100
     Route: 042
  18. RED BLOOD CELLS [Concomitant]
  19. PLATELETS [Concomitant]
     Dosage: 10 KG BODY WEIGHT/UNIT

REACTIONS (18)
  - ACUTE GRAFT VERSUS HOST DISEASE [None]
  - ADENOVIRUS INFECTION [None]
  - BACILLUS INFECTION [None]
  - BACTERAEMIA [None]
  - BK VIRUS INFECTION [None]
  - BONE PAIN [None]
  - CHRONIC GRAFT VERSUS HOST DISEASE [None]
  - CLOSTRIDIUM DIFFICILE COLITIS [None]
  - FUNGAL INFECTION [None]
  - GASTROENTERITIS ADENOVIRUS [None]
  - GASTROENTERITIS SALMONELLA [None]
  - MUCOSAL INFECTION [None]
  - PERICARDIAL EFFUSION [None]
  - PLEURAL EFFUSION [None]
  - PNEUMONIA CYTOMEGALOVIRAL [None]
  - RESPIRATORY SYNCYTIAL VIRUS TEST POSITIVE [None]
  - STAPHYLOCOCCAL BACTERAEMIA [None]
  - TRICHOSPORON INFECTION [None]
